FAERS Safety Report 8950340 (Version 1)
Quarter: 2012Q4

REPORT INFORMATION
  Report Type: Spontaneous
  Country: US (occurrence: None)
  Receive Date: 20121130
  Receipt Date: 20121130
  Transmission Date: 20130627
  Serious: No
  Sender: FDA-Public Use
  Company Number: None

PATIENT
  Age: 68 Year
  Sex: Male

DRUGS (7)
  1. XARELTO [Suspect]
     Indication: ATRIAL FIBRILLATION
     Dosage: 15 mg daily po
02/15 to 8/17
     Route: 048
  2. DOXAZOSIN [Concomitant]
  3. RED KRILL OIL [Concomitant]
  4. FLUTICASONE [Concomitant]
  5. METOPROLOL [Concomitant]
  6. VITAMIN C [Concomitant]
  7. VITAMIN D [Concomitant]

REACTIONS (4)
  - Gastritis erosive [None]
  - Gastrointestinal ulcer haemorrhage [None]
  - Asthenia [None]
  - Haemoglobin decreased [None]
